FAERS Safety Report 7386115-7 (Version None)
Quarter: 2011Q1

REPORT INFORMATION
  Report Type: 
  Country: None (occurrence: None)
  Receive Date: 20110315
  Receipt Date: 20110303
  Transmission Date: 20110831
  Serious: No
  Sender: FDA-Public Use
  Company Number: WSDF_00688

PATIENT
  Sex: Male

DRUGS (5)
  1. GLIPIZIDE [Concomitant]
  2. METFORMIN [Concomitant]
  3. WINRHO SDF LIQUID [Suspect]
     Indication: IDIOPATHIC THROMBOCYTOPENIC PURPURA
     Dosage: INTRAVENOUS (NOT OTHERWISE SPECIFIED)
     Route: 042
     Dates: start: 20071103, end: 20071103
  4. BENADRYL [Concomitant]
  5. ACETAMINOPHEN [Concomitant]

REACTIONS (5)
  - HEADACHE [None]
  - PYREXIA [None]
  - HYPERHIDROSIS [None]
  - CHROMATURIA [None]
  - CHILLS [None]
